FAERS Safety Report 21858954 (Version 1)
Quarter: 2023Q1

REPORT INFORMATION
  Report Type: Spontaneous
  Country: NL (occurrence: NL)
  Receive Date: 20230113
  Receipt Date: 20230113
  Transmission Date: 20230417
  Serious: Yes (Other)
  Sender: FDA-Public Use
  Company Number: NL-BAYER-2023P002004

PATIENT
  Age: 70 Year
  Sex: Female

DRUGS (2)
  1. EYLEA [Suspect]
     Active Substance: AFLIBERCEPT
     Indication: Product used for unknown indication
     Dosage: UNK,SOLUTION FOR INJECTION
  2. BEVACIZUMAB [Concomitant]
     Active Substance: BEVACIZUMAB
     Indication: Product used for unknown indication
     Dosage: UNK,SOLUTION FOR INJECTION

REACTIONS (3)
  - Subretinal fluid [Unknown]
  - Visual impairment [Unknown]
  - Therapeutic product ineffective [Unknown]
